FAERS Safety Report 6774297-7 (Version None)
Quarter: 2010Q2

REPORT INFORMATION
  Report Type: 
  Country: None (occurrence: None)
  Receive Date: 20100617
  Receipt Date: 20100607
  Transmission Date: 20101027
  Serious: Yes (Life-Threatening, Hospitalization)
  Sender: FDA-Public Use
  Company Number: GB-PFIZER INC-2010070732

PATIENT
  Age: 63 Year
  Sex: Male
  Weight: 70 kg

DRUGS (10)
  1. CHAMPIX [Suspect]
     Indication: SMOKING CESSATION THERAPY
     Dosage: 1 MG, 1X/DAY
     Route: 048
     Dates: start: 20100101, end: 20100413
  2. ADIZEM - SLOW RELEASE [Concomitant]
     Indication: ANGINA PECTORIS
     Dosage: 180 MG, 2X/DAY
     Route: 048
     Dates: start: 20070412
  3. ACETYLSALICYLIC ACID [Concomitant]
     Dosage: 75 MG, 1X/DAY
     Route: 048
     Dates: start: 20000508
  4. CANDESARTAN [Concomitant]
     Indication: HYPERTENSION
     Dosage: 8 MG, 1X/DAY
     Route: 048
     Dates: start: 20070503
  5. GLYCERYL TRINITRATE [Concomitant]
     Indication: ANGINA PECTORIS
     Dosage: UNK
     Route: 060
  6. ISOSORBIDE MONONITRATE [Concomitant]
     Indication: MYOCARDIAL ISCHAEMIA
     Dosage: 60 MG, 1X/DAY
     Route: 048
     Dates: start: 20060307
  7. METFORMIN [Concomitant]
     Indication: TYPE 2 DIABETES MELLITUS
     Dosage: 1 G, 2X/DAY
     Route: 048
     Dates: start: 20020617
  8. METOPROLOL [Concomitant]
     Indication: HYPERTENSION
     Dosage: 50 MG, 2X/DAY
     Route: 048
     Dates: start: 20060427, end: 20100413
  9. RAMIPRIL [Concomitant]
     Indication: HYPERTENSION
     Dosage: 10 MG, 1X/DAY
     Route: 048
     Dates: start: 20060914
  10. SIMVASTATIN [Concomitant]
     Dosage: 40 MG, 1X/DAY
     Route: 048
     Dates: start: 20051101

REACTIONS (2)
  - DRUG INTERACTION [None]
  - SINUS BRADYCARDIA [None]
